FAERS Safety Report 5188074-4 (Version None)
Quarter: 2006Q4

REPORT INFORMATION
  Report Type: 
  Country: None (occurrence: None)
  Receive Date: 20061221
  Receipt Date: 20061213
  Transmission Date: 20070319
  Serious: Yes (Other)
  Sender: FDA-Public Use
  Company Number: US-PURDUE-USA_2006_0025942

PATIENT
  Sex: Male

DRUGS (4)
  1. OXYCONTIN [Suspect]
     Indication: DRUG ABUSER
     Dosage: UNK UNK, UNK
     Route: 065
     Dates: start: 20050111
  2. COCAINE [Suspect]
     Indication: DRUG ABUSER
     Dosage: UNK UNK, UNK
     Route: 065
     Dates: start: 20050111
  3. METHYLENEDIOXYAMPHETAMINE [Suspect]
     Indication: DRUG ABUSER
     Dosage: UNK UNK, UNK
     Route: 065
     Dates: start: 20050111
  4. MARIJUANA [Suspect]
     Indication: DRUG ABUSER
     Dosage: UNK UNK, UNK
     Route: 065
     Dates: start: 20050111

REACTIONS (2)
  - LOSS OF CONSCIOUSNESS [None]
  - SUBSTANCE ABUSE [None]
